FAERS Safety Report 8330961-X (Version None)
Quarter: 2012Q2

REPORT INFORMATION
  Report Type: 
  Country: None (occurrence: None)
  Receive Date: 20120502
  Receipt Date: 20120404
  Transmission Date: 20120825
  Serious: No
  Sender: FDA-Public Use
  Company Number: US-AMGEN-USASP2012016460

PATIENT
  Age: 19 Year
  Sex: Male

DRUGS (2)
  1. ZITHROMAX [Concomitant]
     Dosage: UNK
  2. ENBREL [Suspect]
     Indication: PRODUCT USED FOR UNKNOWN INDICATION
     Dosage: 50 MG, QWK

REACTIONS (2)
  - DERMATITIS CONTACT [None]
  - UPPER RESPIRATORY TRACT INFECTION [None]
